FAERS Safety Report 9216683 (Version 1)
Quarter: 2013Q2

REPORT INFORMATION
  Report Type: Spontaneous
  Country: IT (occurrence: None)
  Receive Date: 20130404
  Receipt Date: 20130404
  Transmission Date: 20140414
  Serious: No
  Sender: FDA-Public Use
  Company Number: 1303IT009764

PATIENT
  Age: 63 Year
  Sex: Male

DRUGS (4)
  1. ISOCEF [Suspect]
     Indication: URINARY TRACT INFECTION
     Route: 048
     Dates: start: 20121214, end: 20121214
  2. DICLOFENAC SODIUM (DICLOFENAC SODIUM) [Suspect]
     Indication: NEPHROLITHIASIS
     Dates: start: 20121214, end: 20121214
  3. LANSOX (LANSOPRAZOLE) [Concomitant]
  4. UROREC (SILODOSIN) [Concomitant]

REACTIONS (1)
  - Urticaria [None]
